FAERS Safety Report 7113097-5 (Version None)
Quarter: 2010Q4

REPORT INFORMATION
  Report Type: 
  Country: None (occurrence: None)
  Receive Date: 20101119
  Receipt Date: 20101108
  Transmission Date: 20110411
  Serious: Yes (Other)
  Sender: FDA-Public Use
  Company Number: US-JNJFOC-20101004614

PATIENT
  Sex: Female
  Weight: 102.06 kg

DRUGS (4)
  1. STELARA [Suspect]
     Indication: PSORIASIS
     Dosage: 2 INJECTIONS
     Route: 058
  2. STELARA [Suspect]
     Route: 058
  3. ASPIRIN [Concomitant]
  4. COZAAR [Concomitant]

REACTIONS (2)
  - PSORIASIS [None]
  - PUSTULAR PSORIASIS [None]
